FAERS Safety Report 5824713-X (Version None)
Quarter: 2008Q3

REPORT INFORMATION
  Report Type: 
  Country: None (occurrence: None)
  Receive Date: 20080728
  Receipt Date: 20080716
  Transmission Date: 20090109
  Serious: Yes (Life-Threatening)
  Sender: FDA-Public Use
  Company Number: IT-SANOFI-SYNTHELABO-A06200800417

PATIENT
  Sex: Female

DRUGS (2)
  1. ZOLPIDEM TARTRATE [Suspect]
     Indication: INSOMNIA
     Route: 048
     Dates: start: 20080601, end: 20080607
  2. ACETAMINOPHEN [Suspect]
     Indication: PAIN
     Route: 048
     Dates: start: 20080601, end: 20080607

REACTIONS (1)
  - HEPATITIS [None]
